FAERS Safety Report 8103714-5 (Version None)
Quarter: 2012Q1

REPORT INFORMATION
  Report Type: 
  Country: None (occurrence: None)
  Receive Date: 20120201
  Receipt Date: 20120131
  Transmission Date: 20120608
  Serious: Yes (Other)
  Sender: FDA-Public Use
  Company Number: US-PFIZER INC-2011146095

PATIENT
  Sex: Male
  Weight: 68.027 kg

DRUGS (2)
  1. DILANTIN [Suspect]
     Dosage: UNK
     Route: 048
  2. DILANTIN [Suspect]
     Indication: CONVULSION
     Dosage: 100 MG IN THE MORNING, 30 MG IN THE AFTERNOON, AND 100 MG AT NIGHT
     Route: 048

REACTIONS (3)
  - DYSPHAGIA [None]
  - CONVULSION [None]
  - CHOKING [None]
